FAERS Safety Report 11051090 (Version 2)
Quarter: 2015Q2

REPORT INFORMATION
  Report Type: Spontaneous
  Country: JP (occurrence: JP)
  Receive Date: 20150421
  Receipt Date: 20150512
  Transmission Date: 20150821
  Serious: Yes (Other)
  Sender: FDA-Public Use
  Company Number: JP-SA-2015SA048134

PATIENT
  Age: 4 Year
  Sex: Female

DRUGS (1)
  1. CLAFORAN [Suspect]
     Active Substance: CEFOTAXIME SODIUM
     Dosage: ROUTE: I.V./ I.M.

REACTIONS (1)
  - Sinus node dysfunction [Unknown]
